FAERS Safety Report 16866488 (Version 4)
Quarter: 2020Q3

REPORT INFORMATION
  Report Type: Spontaneous
  Country: US (occurrence: US)
  Receive Date: 20190930
  Receipt Date: 20200807
  Transmission Date: 20201102
  Serious: Yes (Other)
  Sender: FDA-Public Use
  Company Number: PHEH2019US039239

PATIENT
  Sex: Female

DRUGS (1)
  1. GILENYA [Suspect]
     Active Substance: FINGOLIMOD HYDROCHLORIDE
     Indication: PRODUCT USED FOR UNKNOWN INDICATION
     Route: 065

REACTIONS (7)
  - Maternal exposure timing unspecified [Unknown]
  - Multiple sclerosis relapse [Unknown]
  - Vertigo [Unknown]
  - Rebound effect [Unknown]
  - Fall [Unknown]
  - Gait disturbance [Unknown]
  - Coordination abnormal [Unknown]
